FAERS Safety Report 6388848-8 (Version None)
Quarter: 2009Q4

REPORT INFORMATION
  Report Type: 
  Country: None (occurrence: None)
  Receive Date: 20091005
  Receipt Date: 20090928
  Transmission Date: 20100525
  Serious: Yes (Hospitalization)
  Sender: FDA-Public Use
  Company Number: US-KINGPHARMUSA00001-K200901194

PATIENT
  Age: 85 Year
  Sex: Female

DRUGS (14)
  1. ALTACE [Suspect]
     Dosage: UNK
     Route: 048
  2. NOVONORM [Suspect]
     Indication: DIABETES MELLITUS
     Dosage: 1 MG, QD
     Route: 048
     Dates: start: 20090703, end: 20090726
  3. NOVONORM [Suspect]
     Dosage: 1 MG, QD
     Route: 048
     Dates: start: 20090804, end: 20090826
  4. LANTUS [Suspect]
     Indication: DIABETES MELLITUS
     Dosage: UNK
  5. MOPRAL [Suspect]
     Dosage: 20 MG, QD
     Route: 048
     Dates: start: 20090601
  6. TARDYFERON [Suspect]
     Dosage: UNK
     Route: 048
     Dates: start: 20090701
  7. FORLAX [Suspect]
     Dosage: UNK
  8. PARACETAMOL [Suspect]
     Dosage: UNK
     Route: 048
  9. PLAVIX [Suspect]
     Dosage: 75 MG, QD
     Route: 048
  10. CACIT VITAMINE D3 [Suspect]
     Dosage: UNK
     Route: 048
  11. CARTROL [Concomitant]
     Dosage: UNK
  12. CATACOL [Concomitant]
     Dosage: UNK
  13. MYCOSTER [Concomitant]
     Dosage: UNK
  14. ECONAZOLE NITRATE [Concomitant]
     Dosage: UNK

REACTIONS (6)
  - C-REACTIVE PROTEIN INCREASED [None]
  - CARDIAC FAILURE [None]
  - INFLAMMATION [None]
  - LUNG DISORDER [None]
  - PYREXIA [None]
  - STAPHYLOCOCCAL INFECTION [None]
